FAERS Safety Report 17473108 (Version 1)
Quarter: 2020Q1

REPORT INFORMATION
  Report Type: Spontaneous
  Country: IN (occurrence: IN)
  Receive Date: 20200228
  Receipt Date: 20200228
  Transmission Date: 20200409
  Serious: Yes (Other)
  Sender: FDA-Public Use
  Company Number: IN-MACLEODS PHARMACEUTICALS US LTD-IN-MP-000113

PATIENT

DRUGS (5)
  1. AMLODIPINE 10 MG [Suspect]
     Active Substance: AMLODIPINE BESYLATE
     Indication: PRODUCT USED FOR UNKNOWN INDICATION
     Dosage: 10 MILLIGRAM, QD
     Route: 065
  2. ATORVASTATIN 10 MG [Interacting]
     Active Substance: ATORVASTATIN
     Indication: PRODUCT USED FOR UNKNOWN INDICATION
     Dosage: 10 MILLIGRAM, QD
     Route: 065
  3. FRUSEMIDE [Concomitant]
     Active Substance: FUROSEMIDE
     Indication: PRODUCT USED FOR UNKNOWN INDICATION
     Dosage: 40 MILLIGRAM, BID (BDS)
     Route: 065
  4. CLOPIDOGREL [Interacting]
     Active Substance: CLOPIDOGREL BISULFATE
     Indication: PRODUCT USED FOR UNKNOWN INDICATION
     Dosage: 75 MILLIGRAM, QD
     Route: 065
  5. INSULIN [Concomitant]
     Active Substance: INSULIN NOS
     Indication: PRODUCT USED FOR UNKNOWN INDICATION
     Dosage: UNK
     Route: 065

REACTIONS (16)
  - Gait disturbance [Unknown]
  - Renal impairment [Recovered/Resolved]
  - Swelling face [Unknown]
  - Aspartate aminotransferase increased [Recovered/Resolved]
  - Myalgia [Unknown]
  - Myoglobin urine present [Unknown]
  - Chromaturia [Unknown]
  - Drug interaction [Unknown]
  - Peripheral swelling [Unknown]
  - Urine output decreased [Recovered/Resolved]
  - Rhabdomyolysis [Unknown]
  - Posture abnormal [Unknown]
  - Acute kidney injury [Unknown]
  - Decreased appetite [Unknown]
  - Blood creatine phosphokinase increased [Recovered/Resolved]
  - Areflexia [Recovered/Resolved]
